FAERS Safety Report 21663447 (Version 1)
Quarter: 2022Q4

REPORT INFORMATION
  Report Type: Spontaneous
  Country: US (occurrence: None)
  Receive Date: 20221129
  Receipt Date: 20221129
  Transmission Date: 20230113
  Serious: Yes (Other)
  Sender: FDA-Public Use
  Company Number: None

PATIENT
  Age: 63 Year
  Sex: Female
  Weight: 91.35 kg

DRUGS (10)
  1. MOUNJARO [Suspect]
     Active Substance: TIRZEPATIDE
     Indication: Type 2 diabetes mellitus
     Dosage: OTHER STRENGTH : .5 ML;?FREQUENCY : WEEKLY;?OTHER ROUTE : INJECT IN ABDOMEN;?
     Route: 050
     Dates: start: 20221111
  2. Metotoprolol [Concomitant]
  3. LOSARTAN [Concomitant]
     Active Substance: LOSARTAN
  4. atorovastatin [Concomitant]
  5. LAMOTRIGINE [Concomitant]
     Active Substance: LAMOTRIGINE
  6. MOUNJARO [Concomitant]
     Active Substance: TIRZEPATIDE
  7. VITAMINS [Concomitant]
     Active Substance: VITAMINS
  8. VITAMIN D [Concomitant]
     Active Substance: VITAMIN D NOS
  9. VITAMIN C [Concomitant]
     Active Substance: ASCORBIC ACID
  10. COENZYME Q10 [Concomitant]
     Active Substance: DIETARY SUPPLEMENT\UBIDECARENONE

REACTIONS (10)
  - Illness [None]
  - Abdominal pain lower [None]
  - Cold sweat [None]
  - Pyrexia [None]
  - Pallor [None]
  - Muscular weakness [None]
  - Diarrhoea [None]
  - Asthenia [None]
  - Fatigue [None]
  - Muscle spasms [None]

NARRATIVE: CASE EVENT DATE: 20221123
